FAERS Safety Report 25180622 (Version 1)
Quarter: 2025Q2

REPORT INFORMATION
  Report Type: Spontaneous
  Country: US (occurrence: None)
  Receive Date: 20250409
  Receipt Date: 20250409
  Transmission Date: 20250717
  Serious: Yes (unspecified)
  Sender: FDA-CTU
  Company Number: None

PATIENT
  Sex: Female
  Weight: 70.76 kg

DRUGS (12)
  1. CARVEDILOL [Suspect]
     Active Substance: CARVEDILOL
     Dosage: FREQUENCY : TWICE A DAY;?
     Route: 048
     Dates: start: 20241022, end: 20250206
  2. LEVOTHYROXINE [Concomitant]
     Active Substance: LEVOTHYROXINE
  3. Metoprolol Succer [Concomitant]
  4. LOSARTAN POTASSIUM [Concomitant]
     Active Substance: LOSARTAN POTASSIUM
  5. Ro Suvastatin Calcium [Concomitant]
  6. FUROSEMIDE [Concomitant]
     Active Substance: FUROSEMIDE
  7. HYDRALAZINE [Concomitant]
     Active Substance: HYDRALAZINE HYDROCHLORIDE
  8. AMOXICILLIN [Concomitant]
     Active Substance: AMOXICILLIN
  9. BAYER LOW DOSE [Concomitant]
     Active Substance: ASPIRIN
  10. B12 [Concomitant]
  11. CVS B12 Gummies [Concomitant]
  12. Nature Made D3 Extra Strength [Concomitant]

REACTIONS (5)
  - Sedation [None]
  - Malaise [None]
  - Paraesthesia [None]
  - Hypoaesthesia [None]
  - Therapy cessation [None]
